FAERS Safety Report 7760330-2 (Version None)
Quarter: 2011Q3

REPORT INFORMATION
  Report Type: 
  Country: None (occurrence: None)
  Receive Date: 20110919
  Receipt Date: 20110915
  Transmission Date: 20111222
  Serious: Yes (Death)
  Sender: FDA-Public Use
  Company Number: JP-B.I. PHARMACEUTICALS,INC./RIDGEFIELD-2011-BP-22275NB

PATIENT
  Age: 85 Year
  Sex: Female

DRUGS (7)
  1. BISOPROLOL FUMARATE [Concomitant]
     Dosage: 1.25 MG
     Route: 048
     Dates: start: 20110316
  2. RABEPRAZOLE SODIUM [Concomitant]
     Route: 048
  3. PRADAXA [Suspect]
     Indication: ATRIAL FIBRILLATION
     Dosage: 220 MG
     Route: 048
     Dates: start: 20110316, end: 20110901
  4. FERROUS CITRATE [Concomitant]
     Dosage: 100 MG
     Route: 048
     Dates: start: 20110316
  5. EPLERENONE [Concomitant]
     Dosage: 50 MG
     Route: 048
     Dates: start: 20110316
  6. DIART [Concomitant]
     Dosage: 30 MG
     Route: 048
     Dates: start: 20110316
  7. GASTROM [Concomitant]
     Dosage: 1.5 MG
     Route: 048
     Dates: start: 20110316

REACTIONS (6)
  - CARDIO-RESPIRATORY ARREST [None]
  - MELAENA [None]
  - CONSTIPATION [None]
  - DIARRHOEA [None]
  - DECREASED APPETITE [None]
  - GASTROINTESTINAL HAEMORRHAGE [None]
